FAERS Safety Report 6429159-1 (Version None)
Quarter: 2009Q4

REPORT INFORMATION
  Report Type: 
  Country: None (occurrence: None)
  Receive Date: 20091030
  Receipt Date: 20091019
  Transmission Date: 20100525
  Serious: Yes (Hospitalization)
  Sender: FDA-Public Use
  Company Number: ALA_00336_2009

PATIENT
  Sex: Male

DRUGS (1)
  1. METOCLOPRAMIDE [Suspect]
     Indication: GASTROOESOPHAGEAL REFLUX DISEASE
     Dosage: (10 MG/ML 0.7CC QID-30 MIN AC + HS ORAL)
     Route: 048
     Dates: start: 20030317, end: 20030319

REACTIONS (7)
  - CONVULSION [None]
  - DYSTONIA [None]
  - FALL [None]
  - MUSCLE SPASMS [None]
  - OVERDOSE [None]
  - PAIN IN EXTREMITY [None]
  - TARDIVE DYSKINESIA [None]
